FAERS Safety Report 18394591 (Version 1)
Quarter: 2020Q4

REPORT INFORMATION
  Report Type: Spontaneous
  Country: VE (occurrence: VE)
  Receive Date: 20201017
  Receipt Date: 20201017
  Transmission Date: 20210114
  Serious: Yes (Death, Other)
  Sender: FDA-Public Use
  Company Number: NVSC2020VE274150

PATIENT
  Sex: Female

DRUGS (1)
  1. GLIVEC [Suspect]
     Active Substance: IMATINIB MESYLATE
     Indication: CHRONIC MYELOID LEUKAEMIA
     Dosage: 400 MG (4 TABLETS OF 100 MG)
     Route: 065

REACTIONS (7)
  - Diarrhoea [Fatal]
  - Dyspnoea [Fatal]
  - General physical health deterioration [Unknown]
  - Pyrexia [Fatal]
  - Respiratory failure [Fatal]
  - Coronavirus infection [Fatal]
  - Oxygen saturation decreased [Fatal]
